FAERS Safety Report 23895137 (Version 1)
Quarter: 2024Q2

REPORT INFORMATION
  Report Type: Spontaneous
  Country: US (occurrence: None)
  Receive Date: 20240524
  Receipt Date: 20240524
  Transmission Date: 20240715
  Serious: No
  Sender: FDA-Public Use
  Company Number: US-ROCHE-3446081

PATIENT
  Sex: Female

DRUGS (4)
  1. ACTEMRA [Suspect]
     Active Substance: TOCILIZUMAB
     Indication: Systemic scleroderma
     Dosage: 162 MG/0.9 M
     Route: 058
     Dates: start: 202304
  2. ACTEMRA [Suspect]
     Active Substance: TOCILIZUMAB
  3. TYVASO [Concomitant]
     Active Substance: TREPROSTINIL
  4. OFEV [Concomitant]
     Active Substance: NINTEDANIB

REACTIONS (3)
  - Cough [Unknown]
  - Malaise [Unknown]
  - COVID-19 [Unknown]
